FAERS Safety Report 18511726 (Version 3)
Quarter: 2020Q4

REPORT INFORMATION
  Report Type: Spontaneous
  Country: DE (occurrence: DE)
  Receive Date: 20201117
  Receipt Date: 20201215
  Transmission Date: 20210114
  Serious: Yes (Hospitalization)
  Sender: FDA-Public Use
  Company Number: NVSC2020DE300683

PATIENT
  Age: 40 Year
  Sex: Female
  Weight: 49 kg

DRUGS (11)
  1. OLIMEL [Suspect]
     Active Substance: AMINO ACIDS\DEXTROSE\SOYBEAN OIL
     Indication: SHORT-BOWEL SYNDROME
     Dosage: 1.3 L (DOSE REDUCED)
     Route: 065
     Dates: start: 20201016, end: 20201017
  2. MIRTAZAPINE. [Suspect]
     Active Substance: MIRTAZAPINE
     Indication: PRODUCT USED FOR UNKNOWN INDICATION
     Dosage: 45 MG
     Route: 048
     Dates: start: 20200706
  3. CERNEVIT [Suspect]
     Active Substance: VITAMINS
     Dosage: 1.5 UNK (CHANGED TO OLIMEL 7.6% E OVER 24 HR TO REDUCE FAT INTAKE, OVER 24 HOURS)
     Route: 051
     Dates: start: 20201018
  4. PANTOZOL [Suspect]
     Active Substance: PANTOPRAZOLE SODIUM
     Dosage: 40 MG
     Route: 042
     Dates: start: 20200708
  5. CERNEVIT [Suspect]
     Active Substance: VITAMINS
     Dosage: 1.5 UNK
     Route: 051
     Dates: start: 20200708, end: 20201015
  6. OLIMEL [Suspect]
     Active Substance: AMINO ACIDS\DEXTROSE\SOYBEAN OIL
     Dosage: 1.5 L (CHANGED TO OLIMEL 7.6% E OVER 24 HR TO REDUCE FAT INTAKE, OVER 24 HOURS)
     Route: 051
     Dates: start: 20201018
  7. CERNEVIT [Suspect]
     Active Substance: VITAMINS
     Dosage: 1.3 UNK,QD
     Route: 051
     Dates: start: 20200708
  8. TAVOR [Concomitant]
     Indication: PRODUCT USED FOR UNKNOWN INDICATION
     Dosage: 1 MG
     Route: 060
     Dates: start: 20200929
  9. PANTOZOL [Suspect]
     Active Substance: PANTOPRAZOLE SODIUM
     Indication: PRODUCT USED FOR UNKNOWN INDICATION
     Dosage: 40 MG
     Route: 042
     Dates: start: 20200706
  10. OLIMEL [Suspect]
     Active Substance: AMINO ACIDS\DEXTROSE\SOYBEAN OIL
     Indication: PARENTERAL NUTRITION
     Dosage: 1.5 L
     Route: 065
     Dates: start: 20200708, end: 20201015
  11. CERNEVIT [Suspect]
     Active Substance: VITAMINS
     Indication: PARENTERAL NUTRITION
     Dosage: 1 UNK, QD
     Route: 051
     Dates: start: 20200708

REACTIONS (5)
  - Pain [Not Recovered/Not Resolved]
  - Blood bilirubin increased [Not Recovered/Not Resolved]
  - Blood triglycerides increased [Recovering/Resolving]
  - Jaundice [Not Recovered/Not Resolved]
  - Lipase increased [Recovered/Resolved]

NARRATIVE: CASE EVENT DATE: 20200820
